FAERS Safety Report 9416657 (Version 3)
Quarter: 2013Q3

REPORT INFORMATION
  Report Type: Report from Study
  Country: US (occurrence: US)
  Receive Date: 20130724
  Receipt Date: 20130823
  Transmission Date: 20140515
  Serious: Yes (Hospitalization, Other)
  Sender: FDA-Public Use
  Company Number: US-ASTELLAS-2013EU006296

PATIENT
  Age: 65 Year
  Sex: Male
  Weight: 100.2 kg

DRUGS (49)
  1. BLINDED FIDAXOMICIN [Suspect]
     Indication: PROPHYLAXIS
     Dosage: 1 TABLET, QD
     Route: 065
     Dates: start: 20130509, end: 20130529
  2. BLINDED FIDAXOMICIN [Suspect]
     Dosage: 1 TABLET, QD
     Route: 065
     Dates: start: 20130531, end: 20130605
  3. MICAFUNGIN [Suspect]
     Dosage: 100-MG-QD
     Route: 042
     Dates: start: 20130529, end: 20130611
  4. ACETAMINOPHEN [Concomitant]
     Indication: PAIN
     Dosage: 650 MG, PRN
     Route: 048
     Dates: start: 20130506, end: 20130611
  5. SERTRALINE [Concomitant]
     Indication: DEPRESSION
     Dosage: 150 MG, QD
     Route: 048
     Dates: start: 20130327, end: 20130607
  6. OMEPRAZOLE [Concomitant]
     Indication: GASTROOESOPHAGEAL REFLUX DISEASE
     Dosage: 40 MG, PRN
     Route: 048
     Dates: start: 20130327, end: 20130608
  7. NORVASC [Concomitant]
     Indication: HYPERTENSION
     Dosage: 5-10-MG-QD
     Route: 048
     Dates: start: 20130511
  8. CETIRIZINE [Concomitant]
     Indication: HYPERSENSITIVITY
     Dosage: 10 MG, QD
     Route: 048
     Dates: start: 20130511, end: 20130611
  9. PROCHLORPERAZINE [Concomitant]
     Indication: PROPHYLAXIS OF NAUSEA AND VOMITING
     Dosage: 10 MG, PRN
     Route: 048
     Dates: start: 20130514, end: 20130605
  10. HYDRALAZINE [Concomitant]
     Indication: HYPERTENSION
     Dosage: 10 MG, QD
     Route: 048
     Dates: start: 20130515, end: 20130605
  11. HYDRALAZINE [Concomitant]
     Dosage: 5 MG, SINGLE
     Route: 042
     Dates: start: 20130603, end: 20130603
  12. POTASSIUM CHLORIDE [Concomitant]
     Indication: HYPOKALAEMIA
     Dosage: 20-60-MEQ-QD
     Route: 042
     Dates: start: 20130515, end: 20130531
  13. ZOFRAN [Concomitant]
     Indication: PROPHYLAXIS OF NAUSEA AND VOMITING
     Dosage: 8-MG-PRN
     Route: 042
     Dates: start: 20130515, end: 20130527
  14. LOSARTAN [Concomitant]
     Indication: HYPERTENSION
     Dosage: 50 MG, QD
     Route: 048
     Dates: start: 20130511
  15. ACICLOVIR [Concomitant]
     Indication: ANTIVIRAL PROPHYLAXIS
     Dosage: 800-MG-Q12H
     Route: 048
     Dates: start: 20130327, end: 20130611
  16. ACICLOVIR [Concomitant]
     Dosage: 500 MG, BID
     Route: 042
     Dates: start: 20130516, end: 20130610
  17. DIPHENHYDRAMINE [Concomitant]
     Indication: NAUSEA
     Dosage: 50 MG, PRN
     Route: 042
     Dates: start: 20130516, end: 20130524
  18. DIPHENHYDRAMINE [Concomitant]
     Indication: PROPHYLAXIS OF NAUSEA AND VOMITING
     Dosage: 25 MG, PRN
     Route: 048
     Dates: start: 20130520, end: 20130521
  19. DIPHENHYDRAMINE [Concomitant]
     Indication: VOMITING
  20. PANTOPRAZOLE [Concomitant]
     Indication: GASTROOESOPHAGEAL REFLUX DISEASE
     Dosage: 40 MG, QD
     Route: 042
     Dates: start: 20130517, end: 20130605
  21. OCEAN SPRAY [Concomitant]
     Indication: HYPERSENSITIVITY
     Dosage: 1-SPRAY-PRN
     Route: 045
     Dates: start: 20130519
  22. TUMS                               /00193601/ [Concomitant]
     Indication: HYPOCALCAEMIA
     Dosage: 500 MG, PRN
     Route: 048
     Dates: start: 20130519
  23. ONDANSETRON [Concomitant]
     Indication: PROPHYLAXIS OF NAUSEA AND VOMITING
     Dosage: 8-MG-PRN
     Route: 048
     Dates: start: 20130519
  24. ONDANSETRON [Concomitant]
     Dosage: 8 MG, TID
     Route: 042
     Dates: start: 20130530, end: 20130608
  25. TYLENOL [Concomitant]
     Indication: PYREXIA
     Dosage: 650 MG, QD
     Route: 048
     Dates: start: 20130521, end: 20130521
  26. CYCLOSPORINE [Concomitant]
     Indication: IMMUNOSUPPRESSION
     Dosage: 250 MG, QD
     Route: 042
     Dates: start: 20130521, end: 20130612
  27. VORICONAZOLE [Concomitant]
     Indication: ANTIFUNGAL PROPHYLAXIS
     Dosage: 800-1200-MG-QD
     Route: 042
     Dates: start: 20130522, end: 20130528
  28. VORICONAZOLE [Concomitant]
     Dosage: 300-MG-Q12H
     Route: 048
     Dates: start: 20130528
  29. LEVOFLOXACIN [Concomitant]
     Indication: NEUTROPENIA
     Dosage: 750 MG, QD
     Route: 048
     Dates: start: 20130522, end: 20130527
  30. NYSTATIN [Concomitant]
     Indication: RASH
     Dosage: 1-APPLICATION-QD
     Route: 061
     Dates: start: 20130522, end: 20130523
  31. AMBIEN [Concomitant]
     Indication: INSOMNIA
     Dosage: 5 MG, PRN
     Route: 048
     Dates: start: 20130525
  32. DILAUDID [Concomitant]
     Indication: MUCOSAL INFLAMMATION
     Dosage: 1 MG/ML, PRN
     Route: 050
     Dates: start: 20130525, end: 20130526
  33. OXYCODONE [Concomitant]
     Indication: MUCOSAL INFLAMMATION
     Dosage: 5 MG, TID
     Route: 048
     Dates: start: 20130525, end: 20130525
  34. BENADRYL                           /00000402/ [Concomitant]
     Indication: NAUSEA
     Dosage: 25-MG-PRN
     Route: 048
     Dates: start: 20130526, end: 20130526
  35. BENADRYL                           /00000402/ [Concomitant]
     Indication: VOMITING
     Dosage: 25-MG-PRN
     Route: 042
     Dates: start: 20130526, end: 20130526
  36. MAGNESIUM SULFATE [Concomitant]
     Indication: HYPOMAGNESAEMIA
     Dosage: 16-32-MEQ-QD
     Route: 042
     Dates: start: 20130522, end: 20130529
  37. HYDROMORPHONE [Concomitant]
     Indication: MUCOSAL INFLAMMATION
     Dosage: 25-ML-PCA
     Route: 042
     Dates: start: 20130527, end: 20130612
  38. HALOPERIDOL [Concomitant]
     Indication: DELIRIUM
     Dosage: 0.5-1-MG-BID
     Route: 042
     Dates: start: 20130528, end: 20130602
  39. MORPHINE [Concomitant]
     Indication: MUCOSAL INFLAMMATION
     Dosage: 5 MG/ML, QD
     Route: 050
     Dates: start: 20130528
  40. CEFEPIME [Concomitant]
     Indication: NEUTROPENIA
     Dosage: 2 G, BID
     Route: 042
     Dates: start: 20130528, end: 20130603
  41. TRIAMCINOLONE [Concomitant]
     Indication: HYPERSENSITIVITY
     Dosage: 1-APPLICATION-BID
     Route: 061
     Dates: start: 20130529
  42. SUCRALFATE [Concomitant]
     Indication: GASTROOESOPHAGEAL REFLUX DISEASE
     Dosage: 1-3-G-QD
     Route: 048
     Dates: start: 20130529, end: 20130530
  43. FENTANYL [Concomitant]
     Indication: ANALGESIC THERAPY
     Dosage: 50-200-MCG-PRN
     Route: 042
     Dates: start: 20130529, end: 20130606
  44. URSODIOL [Concomitant]
     Indication: PROPHYLAXIS
     Dosage: 600 MG, BID
     Route: 048
     Dates: start: 20130601
  45. AMLODIPINE [Concomitant]
     Indication: HYPERTENSION
     Dosage: 5-10-MG-QD
     Route: 048
     Dates: start: 20130603, end: 20130604
  46. AMLODIPINE [Concomitant]
     Dosage: 10 MG, QD
     Route: 048
     Dates: start: 20130604
  47. DOCUSATE [Concomitant]
     Indication: CONSTIPATION
     Dosage: 200 MG, PRN
     Route: 048
     Dates: start: 20130327, end: 20130611
  48. SENNA ALEXANDRINA [Concomitant]
     Indication: CONSTIPATION
     Dosage: 17.2 MG, PRN
     Route: 048
     Dates: start: 20130327
  49. CALCIUM CARBONATE [Concomitant]
     Indication: GASTROOESOPHAGEAL REFLUX DISEASE
     Dosage: 1000 MG, PRN
     Route: 048
     Dates: start: 20130327, end: 20130611

REACTIONS (1)
  - Graft versus host disease in intestine [Not Recovered/Not Resolved]
